FAERS Safety Report 4557980-3 (Version None)
Quarter: 2005Q1

REPORT INFORMATION
  Report Type: 
  Country: None (occurrence: None)
  Receive Date: 20050121
  Receipt Date: 20040322
  Transmission Date: 20050727
  Serious: No
  Sender: FDA-Public Use
  Company Number: US-BRISTOL-MYERS SQUIBB COMPANY-12553186

PATIENT
  Age: 26 Year
  Sex: Female

DRUGS (2)
  1. SERZONE [Suspect]
     Indication: ANXIETY
     Route: 048
     Dates: start: 19990305, end: 19990318
  2. SERZONE [Suspect]
     Indication: DEPRESSION
     Route: 048
     Dates: start: 19990305, end: 19990318

REACTIONS (5)
  - BLOOD ALKALINE PHOSPHATASE INCREASED [None]
  - BLOOD CALCIUM INCREASED [None]
  - BLOOD CHOLESTEROL INCREASED [None]
  - DIARRHOEA [None]
  - EOSINOPHIL COUNT INCREASED [None]
